FAERS Safety Report 7454610-8 (Version None)
Quarter: 2011Q2

REPORT INFORMATION
  Report Type: 
  Country: None (occurrence: None)
  Receive Date: 20110503
  Receipt Date: 20110427
  Transmission Date: 20111010
  Serious: Yes (Other)
  Sender: FDA-Public Use
  Company Number: US-AMGEN-USASP2011022184

PATIENT
  Age: 45 Year
  Sex: Male

DRUGS (2)
  1. NPLATE [Suspect]
     Indication: IDIOPATHIC THROMBOCYTOPENIC PURPURA
     Dates: start: 20081114, end: 20110121
  2. IVIGLOB-EX [Concomitant]

REACTIONS (2)
  - MYELODYSPLASTIC SYNDROME [None]
  - DRUG INEFFECTIVE [None]
